FAERS Safety Report 18836238 (Version 1)
Quarter: 2021Q1

REPORT INFORMATION
  Report Type: Spontaneous
  Country: US (occurrence: US)
  Receive Date: 20210203
  Receipt Date: 20210203
  Transmission Date: 20210419
  Serious: No
  Sender: FDA-Public Use
  Company Number: US-ALLERGAN-2004135US

PATIENT
  Sex: Male
  Weight: 72.56 kg

DRUGS (3)
  1. TRETINOIN. [Concomitant]
     Active Substance: TRETINOIN
     Route: 061
  2. BOTOX [Suspect]
     Active Substance: ONABOTULINUMTOXINA
     Indication: THORACIC OUTLET SYNDROME
     Dosage: 140 UNITS, SINGLE
     Dates: start: 20191002, end: 20191002
  3. BENZOYL PEROXIDE. [Concomitant]
     Active Substance: BENZOYL PEROXIDE
     Route: 061

REACTIONS (2)
  - Off label use [Unknown]
  - Muscular weakness [Recovered/Resolved]

NARRATIVE: CASE EVENT DATE: 20191005
